FAERS Safety Report 20416865 (Version 1)
Quarter: 2022Q1

REPORT INFORMATION
  Report Type: Spontaneous
  Country: US (occurrence: US)
  Receive Date: 20220202
  Receipt Date: 20220202
  Transmission Date: 20220423
  Serious: Yes (Other)
  Sender: FDA-Public Use
  Company Number: US-PFIZER INC-2021703554

PATIENT
  Age: 79 Year
  Sex: Male
  Weight: 104.33 kg

DRUGS (1)
  1. PROPOFOL [Suspect]
     Active Substance: PROPOFOL

REACTIONS (2)
  - Aggression [Unknown]
  - Drug hypersensitivity [Unknown]
